FAERS Safety Report 20360195 (Version 1)
Quarter: 2022Q1

REPORT INFORMATION
  Report Type: Spontaneous
  Country: US (occurrence: US)
  Receive Date: 20220121
  Receipt Date: 20220121
  Transmission Date: 20220423
  Serious: No
  Sender: FDA-Public Use
  Company Number: US-AUROBINDO-AUR-APL-2021-001675

PATIENT
  Sex: Female

DRUGS (2)
  1. CLOZAPINE [Suspect]
     Active Substance: CLOZAPINE
     Indication: Product used for unknown indication
     Dosage: 50 MILLIGRAM AT 08 AM
     Route: 048
     Dates: start: 202009
  2. CLOZAPINE [Suspect]
     Active Substance: CLOZAPINE
     Indication: Product used for unknown indication
     Dosage: 100 MILLIGRAM AT 8 PM
     Route: 048
     Dates: start: 202009

REACTIONS (1)
  - SARS-CoV-2 test positive [Unknown]
